FAERS Safety Report 7229365-2 (Version None)
Quarter: 2011Q1

REPORT INFORMATION
  Report Type: 
  Country: None (occurrence: None)
  Receive Date: 20110117
  Receipt Date: 20110116
  Transmission Date: 20110831
  Serious: Yes (Hospitalization)
  Sender: FDA-Public Use
  Company Number: A0887132A

PATIENT
  Age: 73 Year
  Sex: Female

DRUGS (1)
  1. AVANDIA [Suspect]
     Dosage: 8MG PER DAY
     Route: 048
     Dates: start: 20050401, end: 20070509

REACTIONS (4)
  - ARTERIOSCLEROSIS CORONARY ARTERY [None]
  - STENT PLACEMENT [None]
  - TACHYCARDIA [None]
  - CORONARY ARTERY DISEASE [None]
